FAERS Safety Report 7324547-3 (Version None)
Quarter: 2011Q1

REPORT INFORMATION
  Report Type: 
  Country: None (occurrence: None)
  Receive Date: 20110203
  Receipt Date: 20101018
  Transmission Date: 20110831
  Serious: Yes (Hospitalization, Other)
  Sender: FDA-Public Use
  Company Number: 020569

PATIENT
  Sex: Male

DRUGS (2)
  1. LEVETIRACETAM [Suspect]
  2. DASATINIB [Suspect]
     Indication: GLIOBLASTOMA MULTIFORME
     Dosage: (100 MG BID ORAL)
     Route: 048
     Dates: start: 20100407, end: 20100726

REACTIONS (2)
  - GRAND MAL CONVULSION [None]
  - PARTIAL SEIZURES [None]
